FAERS Safety Report 4589429-9 (Version None)
Quarter: 2005Q1

REPORT INFORMATION
  Report Type: 
  Country: None (occurrence: None)
  Receive Date: 20050223
  Receipt Date: 20050106
  Transmission Date: 20050727
  Serious: Yes (Hospitalization)
  Sender: FDA-Public Use
  Company Number: 200510181JP

PATIENT
  Age: 53 Year
  Sex: Female
  Weight: 45 kg

DRUGS (25)
  1. LANTUS [Suspect]
     Indication: DIABETES MELLITUS INSULIN-DEPENDENT
     Route: 058
     Dates: start: 20041022, end: 20050105
  2. OPTIPEN (INSULIN PUMP) [Suspect]
  3. ALFAROL [Concomitant]
     Indication: OSTEOPOROSIS
     Route: 048
     Dates: start: 20030203, end: 20050105
  4. MEVALOTIN [Concomitant]
     Indication: HYPERLIPIDAEMIA
     Route: 048
     Dates: start: 20030108, end: 20050105
  5. GASMOTIN [Concomitant]
     Indication: HYPERLIPIDAEMIA
     Route: 048
     Dates: start: 20030201, end: 20050105
  6. NOVOLIN R [Concomitant]
     Indication: DIABETES MELLITUS INSULIN-DEPENDENT
     Dosage: DOSE: 2-6; DOSE UNIT: UNITS
     Route: 058
     Dates: start: 20041022, end: 20050109
  7. NOVOLIN N [Concomitant]
     Indication: DIABETES MELLITUS INSULIN-DEPENDENT
     Dosage: DOSE: 16-4; DOSE UNIT: UNITS
     Route: 058
     Dates: start: 20050110
  8. NAUZELIN [Concomitant]
     Indication: NAUSEA
     Route: 048
     Dates: start: 20041030, end: 20041102
  9. MAGLAX [Concomitant]
     Indication: CONSTIPATION
     Route: 048
     Dates: start: 20041114, end: 20041203
  10. PONTAL [Concomitant]
     Indication: HEADACHE
     Route: 048
     Dates: start: 20041220
  11. ANHIBA [Concomitant]
     Indication: PYREXIA
     Route: 054
     Dates: start: 20040105
  12. FLAVITAN [Concomitant]
     Indication: INTESTINAL OBSTRUCTION
     Route: 041
     Dates: start: 20041103, end: 20041105
  13. VITAMIN C [Concomitant]
     Indication: INTESTINAL OBSTRUCTION
     Route: 041
     Dates: start: 20041103, end: 20041105
  14. BENOXIL [Concomitant]
     Indication: CATARACT
     Dates: start: 20041028, end: 20041028
  15. XYLOCAINE [Concomitant]
     Dates: start: 20041028, end: 20041028
  16. MANNIGEN [Concomitant]
     Indication: CATARACT OPERATION
     Route: 041
     Dates: start: 20041028, end: 20041028
  17. FLUMARIN [Concomitant]
     Indication: CATARACT OPERATION
     Route: 041
     Dates: start: 20041028, end: 20041028
  18. PHYSIOLOGICAL SALINE [Concomitant]
     Indication: CATARACT OPERATION
     Route: 041
     Dates: start: 20041028, end: 20041028
  19. CRAVIT [Concomitant]
     Indication: CATARACT OPERATION
     Dates: start: 20041028, end: 20041201
  20. DICHLOD [Concomitant]
     Indication: CATARACT OPERATION
     Dates: start: 20041028, end: 20041201
  21. MYDRIN [Concomitant]
     Indication: CATARACT OPERATION
     Dates: start: 20041028, end: 20041028
  22. RINDERON [Concomitant]
     Indication: CATARACT OPERATION
     Dates: start: 20041029, end: 20041029
  23. FLOMOX [Concomitant]
     Indication: CATARACT OPERATION
     Route: 048
     Dates: start: 20041020, end: 20041201
  24. ANTIDIARRHOEAL MICROORGANISMS [Concomitant]
     Indication: CATARACT OPERATION
     Route: 048
     Dates: start: 20041029, end: 20041201
  25. BESTRON [Concomitant]
     Indication: CATARACT OPERATION
     Dates: start: 20041030

REACTIONS (14)
  - ALANINE AMINOTRANSFERASE INCREASED [None]
  - ASPARTATE AMINOTRANSFERASE INCREASED [None]
  - BLOOD ALKALINE PHOSPHATASE INCREASED [None]
  - CHOLECYSTITIS CHRONIC [None]
  - CHOLELITHIASIS [None]
  - GAMMA-GLUTAMYLTRANSFERASE INCREASED [None]
  - HEADACHE [None]
  - HEPATIC FUNCTION ABNORMAL [None]
  - INTESTINAL OBSTRUCTION [None]
  - LIVER DISORDER [None]
  - PLATELET COUNT DECREASED [None]
  - PYREXIA [None]
  - RHINORRHOEA [None]
  - WHITE BLOOD CELL COUNT DECREASED [None]
